FAERS Safety Report 8357847-9 (Version None)
Quarter: 2012Q2

REPORT INFORMATION
  Report Type: 
  Country: None (occurrence: None)
  Receive Date: 20120514
  Receipt Date: 20110902
  Transmission Date: 20120825
  Serious: No
  Sender: FDA-Public Use
  Company Number: US-TEVA-2011004616

PATIENT
  Sex: Male
  Weight: 65.83 kg

DRUGS (3)
  1. LIPITOR [Concomitant]
     Dates: start: 19910101
  2. NUVIGIL [Suspect]
     Indication: NARCOLEPSY
     Route: 048
     Dates: start: 20100101, end: 20110401
  3. NUVIGIL [Suspect]
     Indication: HYPERSOMNIA

REACTIONS (1)
  - RASH PRURITIC [None]
